FAERS Safety Report 6916699-1 (Version None)
Quarter: 2010Q3

REPORT INFORMATION
  Report Type: 
  Country: None (occurrence: None)
  Receive Date: 20100810
  Receipt Date: 20100805
  Transmission Date: 20110219
  Serious: Yes (Death)
  Sender: FDA-Public Use
  Company Number: TN-SANOFI-AVENTIS-2010SA046510

PATIENT
  Age: 76 Year
  Sex: Male

DRUGS (8)
  1. PLAVIX [Suspect]
     Indication: ACUTE CORONARY SYNDROME
     Route: 048
     Dates: start: 20100228, end: 20100729
  2. PLAVIX [Suspect]
     Indication: ANGIOPLASTY
     Route: 048
     Dates: start: 20100228, end: 20100729
  3. PLAVIX [Suspect]
     Indication: STENT PLACEMENT
     Route: 048
     Dates: start: 20100228, end: 20100729
  4. INSULATARD [Concomitant]
     Route: 058
     Dates: end: 20100729
  5. ASPEGIC 1000 [Concomitant]
     Indication: ACUTE CORONARY SYNDROME
     Route: 048
     Dates: end: 20100729
  6. LASIX [Concomitant]
     Indication: HYPERTENSION
     Route: 048
     Dates: end: 20100729
  7. TAHOR [Concomitant]
     Indication: DYSLIPIDAEMIA
     Route: 048
     Dates: end: 20100729
  8. CORVASAL [Concomitant]
     Indication: HYPERTENSION
     Route: 048
     Dates: end: 20100729

REACTIONS (1)
  - RENAL FAILURE [None]
